FAERS Safety Report 10732641 (Version 3)
Quarter: 2015Q1

REPORT INFORMATION
  Report Type: Report from Study
  Country: US (occurrence: US)
  Receive Date: 20150123
  Receipt Date: 20150210
  Transmission Date: 20150721
  Serious: Yes (Other)
  Sender: FDA-Public Use
  Company Number: US-BAYER-2015-001359

PATIENT
  Age: 71 Year
  Sex: Female

DRUGS (2)
  1. STIVARGA [Suspect]
     Active Substance: REGORAFENIB
     Indication: COLON CANCER
     Dosage: DAILY DOSE 120 MG
     Route: 048
     Dates: start: 20141227
  2. STIVARGA [Suspect]
     Active Substance: REGORAFENIB
     Indication: COLON CANCER
     Dosage: DAILY DOSE 80 MG
     Route: 048
     Dates: start: 20150131

REACTIONS (8)
  - Blood pressure increased [Recovered/Resolved]
  - Peripheral swelling [Not Recovered/Not Resolved]
  - Pain in extremity [None]
  - Constipation [None]
  - Pain in extremity [Not Recovered/Not Resolved]
  - Blister [Recovering/Resolving]
  - Headache [Recovered/Resolved]
  - Muscle spasms [None]

NARRATIVE: CASE EVENT DATE: 20150102
